FAERS Safety Report 4554174-2 (Version None)
Quarter: 2005Q1

REPORT INFORMATION
  Report Type: 
  Country: None (occurrence: None)
  Receive Date: 20050118
  Receipt Date: 20050106
  Transmission Date: 20050727
  Serious: Yes (Hospitalization)
  Sender: FDA-Public Use
  Company Number: FR-MERCK-0501FRA00024

PATIENT
  Age: 71 Year
  Sex: Male

DRUGS (7)
  1. ZOCOR [Suspect]
     Route: 048
     Dates: start: 20000615
  2. ALLOPURINOL [Suspect]
     Route: 048
     Dates: start: 20010615
  3. BUMETANIDE [Suspect]
     Route: 048
     Dates: start: 19990615
  4. ATENOLOL [Suspect]
     Route: 048
     Dates: start: 20000615
  5. CYCLOSPORINE [Suspect]
     Route: 048
     Dates: start: 19941101
  6. MYCOPHENOLATE MOFETIL [Suspect]
     Route: 048
     Dates: start: 20030615
  7. OMEPRAZOLE [Concomitant]
     Route: 048
     Dates: start: 20020615

REACTIONS (11)
  - CENTRAL NERVOUS SYSTEM LYMPHOMA [None]
  - CHOLECYSTECTOMY [None]
  - GENERAL PHYSICAL HEALTH DETERIORATION [None]
  - HEADACHE [None]
  - HYPERTHYROIDISM [None]
  - MOTOR DYSFUNCTION [None]
  - RENAL TRANSPLANT [None]
  - RHABDOMYOLYSIS [None]
  - SOMNOLENCE [None]
  - THROMBOSIS [None]
  - WEIGHT DECREASED [None]
